FAERS Safety Report 9524668 (Version 1)
Quarter: 2013Q3

REPORT INFORMATION
  Report Type: Spontaneous
  Country: US (occurrence: US)
  Receive Date: 20130916
  Receipt Date: 20130916
  Transmission Date: 20140515
  Serious: Yes (Other)
  Sender: FDA-Public Use
  Company Number: US-SANOFI-AVENTIS-2013SA089748

PATIENT
  Age: 54 Year
  Sex: Male

DRUGS (5)
  1. APIDRA SOLOSTAR [Suspect]
     Indication: TYPE 2 DIABETES MELLITUS
     Dosage: DOSAGE: SLIDING SCALE?FREQUENCY: WITH MEALS
     Route: 058
  2. SOLOSTAR [Concomitant]
  3. LANTUS SOLOSTAR [Suspect]
     Indication: TYPE 2 DIABETES MELLITUS
     Dosage: DOSE:32 UNIT(S)
     Route: 058
  4. SOLOSTAR [Concomitant]
  5. HUMALOG [Suspect]
     Route: 065

REACTIONS (3)
  - Nephrolithiasis [Unknown]
  - Blood glucose decreased [Unknown]
  - Weight increased [Unknown]
